FAERS Safety Report 24313437 (Version 1)
Quarter: 2024Q3

REPORT INFORMATION
  Report Type: Spontaneous
  Country: US (occurrence: None)
  Receive Date: 20240911
  Receipt Date: 20240911
  Transmission Date: 20241016
  Serious: Yes (Other)
  Sender: Public
  Company Number: None

PATIENT
  Age: 56 Year
  Sex: Female
  Weight: 64.8 kg

DRUGS (11)
  1. COSMETICS [Suspect]
     Active Substance: COSMETICS
     Indication: Prophylaxis against solar radiation
     Route: 061
     Dates: start: 20200527, end: 20240417
  2. COSMETICS [Suspect]
     Active Substance: COSMETICS
     Indication: Prophylaxis against solar radiation
     Dosage: FREQUENCY : EVERY DAY BEFORE NOON;?
     Route: 061
  3. SYNTHROID [Concomitant]
  4. RECLAST [Concomitant]
     Active Substance: ZOLEDRONIC ACID
  5. ESTROGEN [Concomitant]
  6. progresteron [Concomitant]
  7. ANTACID [Concomitant]
     Active Substance: ALUMINUM HYDROXIDE\CALCIUM CARBONATE\DIMETHICONE\MAGNESIUM HYDROXIDE
  8. rizotriptan [Concomitant]
  9. CALCIUM\VITAMIN D [Concomitant]
     Active Substance: CALCIUM\VITAMIN D
  10. Multivitamin [Concomitant]
  11. IBUPROFEN [Concomitant]
     Active Substance: IBUPROFEN

REACTIONS (1)
  - Hypersensitivity [None]

NARRATIVE: CASE EVENT DATE: 20240417
